FAERS Safety Report 7108166-X (Version None)
Quarter: 2010Q4

REPORT INFORMATION
  Report Type: 
  Country: None (occurrence: None)
  Receive Date: 20101115
  Receipt Date: 20101115
  Transmission Date: 20110411
  Serious: No
  Sender: FDA-Public Use
  Company Number: None

PATIENT
  Sex: Male
  Weight: 92.9874 kg

DRUGS (1)
  1. CLOTRIMAZOLE [Suspect]
     Indication: FUNGAL SKIN INFECTION
     Dosage: LIBERALLY 2 TIMES DAY
     Dates: start: 20101018, end: 20101025

REACTIONS (1)
  - DIZZINESS [None]
